FAERS Safety Report 6807682-5 (Version None)
Quarter: 2010Q2

REPORT INFORMATION
  Report Type: 
  Country: None (occurrence: None)
  Receive Date: 20100629
  Receipt Date: 20081121
  Transmission Date: 20101027
  Serious: No
  Sender: FDA-Public Use
  Company Number: US-PFIZER INC-2008091849

PATIENT
  Sex: Female
  Weight: 68.04 kg

DRUGS (5)
  1. ARTHROTEC [Suspect]
     Indication: ARTHRALGIA
     Route: 048
     Dates: start: 20081016
  2. ARTHROTEC [Suspect]
     Indication: PAIN IN EXTREMITY
  3. PSYCHOSTIMULANTS AND NOOTROPICS [Concomitant]
     Indication: ATTENTION DEFICIT/HYPERACTIVITY DISORDER
  4. DURAGESIC-100 [Concomitant]
  5. ROXICODONE [Concomitant]

REACTIONS (5)
  - CIRCUMSTANCE OR INFORMATION CAPABLE OF LEADING TO MEDICATION ERROR [None]
  - FATIGUE [None]
  - NAUSEA [None]
  - PAIN [None]
  - SWELLING [None]
